APPROVED DRUG PRODUCT: DOXYCYCLINE HYCLATE
Active Ingredient: DOXYCYCLINE HYCLATE
Strength: EQ 100MG BASE
Dosage Form/Route: CAPSULE, COATED PELLETS;ORAL
Application: A063187 | Product #001
Applicant: PLIVA INC
Approved: Jun 30, 1992 | RLD: No | RS: No | Type: DISCN